FAERS Safety Report 6430222-X (Version None)
Quarter: 2009Q4

REPORT INFORMATION
  Report Type: 
  Country: None (occurrence: None)
  Receive Date: 20091106
  Receipt Date: 20091026
  Transmission Date: 20100525
  Serious: Yes (Other)
  Sender: FDA-Public Use
  Company Number: US-AVENTIS-200919554US

PATIENT
  Sex: Female

DRUGS (8)
  1. LANTUS [Suspect]
     Route: 058
     Dates: start: 20070101
  2. OPTICLIK (INSULIN INJECTION PEN) [Suspect]
  3. AMBIEN [Concomitant]
     Indication: INSOMNIA
     Route: 048
  4. ASPIRIN [Concomitant]
     Dosage: DOSE: UNK
  5. INSULIN NOS [Concomitant]
     Dosage: DOSE: UNK
  6. FOLIC ACID [Concomitant]
     Dosage: DOSE: UNK
  7. TAMSULOSIN [Concomitant]
     Dosage: DOSE: UNK
  8. UNKNOWN DRUG [Concomitant]
     Dosage: DOSE: UNK

REACTIONS (6)
  - BLOOD GLUCOSE DECREASED [None]
  - BLOOD GLUCOSE INCREASED [None]
  - CONTUSION [None]
  - FALL [None]
  - JOINT SPRAIN [None]
  - PAIN IN EXTREMITY [None]
